FAERS Safety Report 8444288-9 (Version None)
Quarter: 2012Q2

REPORT INFORMATION
  Report Type: 
  Country: None (occurrence: None)
  Receive Date: 20120618
  Receipt Date: 20120609
  Transmission Date: 20120825
  Serious: Yes (Hospitalization, Other)
  Sender: FDA-Public Use
  Company Number: US-ASTELLAS-2012US005375

PATIENT
  Age: 80 Year
  Sex: Female
  Weight: 70 kg

DRUGS (3)
  1. ERLOTINIB HYDROCHLORIDE [Suspect]
     Dosage: 50 MG, UID/QD
     Route: 048
     Dates: end: 20120528
  2. AZD6244 HYDROGEN SULFATE [Suspect]
     Indication: LUNG SQUAMOUS CELL CARCINOMA STAGE UNSPECIFIED
     Dosage: 150 MG, UID/QD
     Route: 048
     Dates: start: 20120411, end: 20120529
  3. ERLOTINIB HYDROCHLORIDE [Suspect]
     Indication: LUNG SQUAMOUS CELL CARCINOMA STAGE UNSPECIFIED
     Dosage: 100 MG, UID/QD
     Route: 048
     Dates: start: 20120411

REACTIONS (11)
  - HYPOALBUMINAEMIA [None]
  - VOMITING [None]
  - HAEMOGLOBIN DECREASED [None]
  - DEHYDRATION [None]
  - MELAENA [None]
  - HYPOTENSION [None]
  - NAUSEA [None]
  - MUSCULAR WEAKNESS [None]
  - BLOOD CREATININE INCREASED [None]
  - INCORRECT DOSE ADMINISTERED [None]
  - DIARRHOEA [None]
